FAERS Safety Report 16957594 (Version 1)
Quarter: 2019Q4

REPORT INFORMATION
  Report Type: Other
  Country: ES (occurrence: ES)
  Receive Date: 20191024
  Receipt Date: 20191024
  Transmission Date: 20200122
  Serious: Yes (Other)
  Sender: FDA-Public Use
  Company Number: ES-VALIDUS PHARMACEUTICALS LLC-ES-2019VAL000625

PATIENT

DRUGS (2)
  1. DIGOXIN. [Suspect]
     Active Substance: DIGOXIN
     Indication: PRODUCT USED FOR UNKNOWN INDICATION
     Dosage: 500 ?G, QD
     Route: 048
     Dates: start: 201908, end: 20190902
  2. FUROSEMIDE. [Suspect]
     Active Substance: FUROSEMIDE
     Indication: CARDIAC FAILURE
     Dosage: 40 MG, QD
     Route: 048
     Dates: start: 201908, end: 20190902

REACTIONS (5)
  - Cardiac failure [Recovered/Resolved]
  - Toxicity to various agents [Recovered/Resolved]
  - Condition aggravated [Recovered/Resolved]
  - Incorrect dosage administered [Unknown]
  - Wrong product administered [Unknown]

NARRATIVE: CASE EVENT DATE: 201908
